FAERS Safety Report 4836976-8 (Version None)
Quarter: 2005Q4

REPORT INFORMATION
  Report Type: 
  Country: None (occurrence: None)
  Receive Date: 20051121
  Receipt Date: 20051114
  Transmission Date: 20060501
  Serious: No
  Sender: FDA-Public Use
  Company Number: DK-2005-024140

PATIENT
  Age: 24 Year
  Sex: Female

DRUGS (1)
  1. YASMIN [Suspect]

REACTIONS (3)
  - DEPRESSED MOOD [None]
  - ECTOPIC PREGNANCY [None]
  - UNINTENDED PREGNANCY [None]
